FAERS Safety Report 8248961-7 (Version None)
Quarter: 2012Q2

REPORT INFORMATION
  Report Type: 
  Country: None (occurrence: None)
  Receive Date: 20120402
  Receipt Date: 20120322
  Transmission Date: 20120825
  Serious: Yes (Hospitalization)
  Sender: FDA-Public Use
  Company Number: US-BIOGENIDEC-2011BI011416

PATIENT
  Age: 42 Year
  Sex: Male

DRUGS (17)
  1. TYSABRI [Suspect]
     Route: 042
     Dates: start: 20111122
  2. NICODERM CQ [Concomitant]
     Indication: TOBACCO ABUSE
     Route: 023
  3. TYSABRI [Suspect]
     Indication: MULTIPLE SCLEROSIS
     Route: 042
     Dates: start: 20081008, end: 20110112
  4. BACLOFEN [Concomitant]
     Indication: MUSCLE SPASMS
     Route: 048
  5. IBUPROFEN (ADVIL) [Concomitant]
     Indication: PAIN
  6. VENTOLIN [Concomitant]
     Indication: RESPIRATORY TRACT CONGESTION
     Route: 045
  7. EXTRA STRENGTH TYLENOL [Concomitant]
     Indication: PAIN
     Route: 048
  8. VENTOLIN [Concomitant]
     Indication: WHEEZING
     Route: 045
  9. TRAZODONE HCL [Concomitant]
     Indication: SLEEP DISORDER
     Route: 048
  10. TRAMADOL HCL [Concomitant]
     Indication: PAIN
     Route: 048
  11. TIZANIDINE HYDROCHLORIDE [Concomitant]
     Indication: MUSCLE SPASMS
  12. VITAMIN D [Concomitant]
     Route: 048
  13. FLUCONAZOLE [Concomitant]
  14. OXYGEN [Concomitant]
     Indication: SLEEP APNOEA SYNDROME
  15. DIAZEPAM [Concomitant]
  16. GABAPENTIN [Concomitant]
     Route: 048
  17. FAMOTIDINE [Concomitant]

REACTIONS (11)
  - PYELONEPHRITIS [None]
  - CYSTITIS [None]
  - URINARY TRACT INFECTION [None]
  - MULTIPLE SCLEROSIS RELAPSE [None]
  - MOOD SWINGS [None]
  - ASTHENIA [None]
  - WEIGHT DECREASED [None]
  - INFLUENZA [None]
  - SEPSIS [None]
  - PSYCHOTIC BEHAVIOUR [None]
  - PNEUMONIA [None]
